FAERS Safety Report 6655657-1 (Version None)
Quarter: 2010Q1

REPORT INFORMATION
  Report Type: 
  Country: None (occurrence: None)
  Receive Date: 20100326
  Receipt Date: 20100326
  Transmission Date: 20100710
  Serious: Yes (Hospitalization)
  Sender: FDA-Public Use
  Company Number: None

PATIENT
  Age: 86 Year
  Sex: Male
  Weight: 74.8 kg

DRUGS (2)
  1. VANCOMYCIN [Suspect]
     Indication: SURGERY
     Dosage: 1 GM BID IV
     Route: 042
     Dates: start: 20100315, end: 20100318
  2. CIPROFLOXACIN IN DEXTROSE [Suspect]
     Indication: SURGERY
     Dosage: 400 MG BID IV
     Route: 042
     Dates: start: 20100315, end: 20100318

REACTIONS (5)
  - PRURITUS [None]
  - RASH ERYTHEMATOUS [None]
  - RASH GENERALISED [None]
  - RASH PAPULAR [None]
  - URTICARIA [None]
